FAERS Safety Report 9247993 (Version 1)
Quarter: 2013Q2

REPORT INFORMATION
  Report Type: Spontaneous
  Country: US (occurrence: US)
  Receive Date: 20130423
  Receipt Date: 20130423
  Transmission Date: 20140414
  Serious: No
  Sender: FDA-Public Use
  Company Number: US-PFIZER INC-2013122699

PATIENT
  Age: 62 Year
  Sex: Female

DRUGS (7)
  1. LYRICA [Suspect]
     Indication: PAIN
     Dosage: 600 MG, 1X/DAY
  2. LYRICA [Suspect]
     Dosage: 100 MG, 4X/DAY (400MG DAILY)
  3. OXYCODONE HYDROCHLORIDE [Suspect]
     Dosage: UNK
  4. LIDOCAINE-PRILOCAINE [Suspect]
     Indication: PAIN IN EXTREMITY
     Dosage: UNK
  5. ZOLPIDEM TARTRATE [Suspect]
     Dosage: UNK
  6. VOLTAREN [Suspect]
     Indication: PAIN
     Dosage: 50 MG, UNK
  7. VOLTAREN [Suspect]
     Indication: PAIN
     Dosage: UNK

REACTIONS (1)
  - Arthropathy [Unknown]
